FAERS Safety Report 6504970-7 (Version None)
Quarter: 2009Q4

REPORT INFORMATION
  Report Type: 
  Country: None (occurrence: None)
  Receive Date: 20091216
  Receipt Date: 20091209
  Transmission Date: 20100525
  Serious: Yes (Death)
  Sender: FDA-Public Use
  Company Number: 2009SP039137

PATIENT
  Age: 63 Year
  Sex: Female

DRUGS (4)
  1. MIRTAZAPINE [Suspect]
     Indication: DEPRESSION
     Dosage: 15 MG;QD;PO
     Route: 048
     Dates: start: 20091016, end: 20091026
  2. ETHYL LOFLAZEPATE [Concomitant]
  3. ZOLPIDEM TARTRATE [Concomitant]
  4. METOPROLOL TARTRATE [Concomitant]

REACTIONS (13)
  - BLOOD CREATINE PHOSPHOKINASE INCREASED [None]
  - BONE PAIN [None]
  - COMPLETED SUICIDE [None]
  - DEPRESSION [None]
  - DISTURBANCE IN ATTENTION [None]
  - DYSPNOEA [None]
  - FEELING HOT [None]
  - HYPERTENSION [None]
  - HYPOAESTHESIA [None]
  - INSOMNIA [None]
  - MALAISE [None]
  - THYROID FUNCTION TEST ABNORMAL [None]
  - WEIGHT DECREASED [None]
